FAERS Safety Report 4833952-6 (Version None)
Quarter: 2005Q4

REPORT INFORMATION
  Report Type: 
  Country: None (occurrence: None)
  Receive Date: 20051118
  Receipt Date: 20051118
  Transmission Date: 20060501
  Serious: No
  Sender: FDA-Public Use
  Company Number: None

PATIENT
  Sex: Female

DRUGS (1)
  1. LUTERA [Suspect]
     Indication: ORAL CONTRACEPTION
     Dosage: 1 TABLET ORALLY DAILY INCLUDING INERT TABS  (PRESENTLY IN MIDDLE OF CYCLE + WILL FINISH)
     Route: 048
     Dates: start: 20050824

REACTIONS (1)
  - METRORRHAGIA [None]
